FAERS Safety Report 10063583 (Version 1)
Quarter: 2014Q2

REPORT INFORMATION
  Report Type: Spontaneous
  Country: GB (occurrence: GB)
  Receive Date: 20140407
  Receipt Date: 20140407
  Transmission Date: 20141212
  Serious: Yes (Life-Threatening, Hospitalization, Other)
  Sender: FDA-Public Use
  Company Number: PHHY2014GB040899

PATIENT
  Age: 71 Year
  Sex: Female

DRUGS (11)
  1. ATIMOS [Suspect]
     Indication: CHRONIC OBSTRUCTIVE PULMONARY DISEASE
     Dosage: 12 MG, UNK
     Route: 055
     Dates: start: 20140210, end: 20140217
  2. DIPROBASE                          /01132701/ [Concomitant]
     Dosage: UNK UKN, UNK
     Route: 061
  3. LACIDIPINE [Concomitant]
     Dosage: 6 MG, DAILY
  4. METFORMIN [Concomitant]
     Dosage: 500 MG, TID
  5. MONTELUKAST [Concomitant]
     Dosage: 10 MG, QD
     Route: 048
  6. OMEPRAZOLE [Concomitant]
     Dosage: 10 MG, QD
     Route: 048
  7. SALMETEROL [Concomitant]
     Dosage: 50 UG, BID
  8. SIMVASTATIN [Concomitant]
     Dosage: 40 MG, QD
     Route: 048
  9. TIOTROPIUM BROMIDE [Concomitant]
     Dosage: 18 UG, QD
     Route: 055
  10. VENTOLIN                           /00942701/ [Concomitant]
     Dosage: 200 UG, AS NEEDED
     Route: 055
  11. IBUPROFEN [Concomitant]
     Dosage: UNK UKN, UNK

REACTIONS (3)
  - Burning sensation [Recovered/Resolved]
  - Erythema [Recovered/Resolved]
  - Dyspnoea [Recovered/Resolved]
